FAERS Safety Report 11876613 (Version 2)
Quarter: 2016Q1

REPORT INFORMATION
  Report Type: Other
  Country: FR (occurrence: FR)
  Receive Date: 20151229
  Receipt Date: 20160122
  Transmission Date: 20160526
  Serious: Yes (Hospitalization, Other)
  Sender: FDA-Public Use
  Company Number: FR-TAKEDA-2015TEU010926

PATIENT
  Age: 57 Year
  Sex: Male

DRUGS (6)
  1. SALAZOPYRINE [Suspect]
     Active Substance: SULFASALAZINE
     Indication: PRODUCT USED FOR UNKNOWN INDICATION
     Dosage: UNK
     Route: 048
     Dates: start: 20150404, end: 20150501
  2. BIRODOGYL [Concomitant]
     Active Substance: METRONIDAZOLE\SPIRAMYCIN
     Indication: PRODUCT USED FOR UNKNOWN INDICATION
     Dosage: UNK
     Route: 048
     Dates: start: 20150429, end: 20150501
  3. CALYPTOL                           /01387201/ [Concomitant]
     Dosage: UNK
     Route: 055
     Dates: start: 20150409
  4. DOXYCYCLINE ARROW [Suspect]
     Active Substance: DOXYCYCLINE
     Indication: ROCKY MOUNTAIN SPOTTED FEVER
     Dosage: UNK
     Route: 048
     Dates: start: 20150325, end: 20150403
  5. OGAST [Suspect]
     Active Substance: LANSOPRAZOLE
     Indication: PRODUCT USED FOR UNKNOWN INDICATION
     Dosage: UNK
     Route: 048
     Dates: start: 20150409, end: 20150501
  6. DICLOFENAC SODIUM. [Suspect]
     Active Substance: DICLOFENAC SODIUM
     Indication: PRODUCT USED FOR UNKNOWN INDICATION
     Dosage: UNK
     Route: 048
     Dates: start: 20150409, end: 20150501

REACTIONS (4)
  - Pyrexia [Recovered/Resolved]
  - Interstitial lung disease [Recovered/Resolved]
  - Splenomegaly [Recovered/Resolved]
  - Hepatitis [Recovering/Resolving]

NARRATIVE: CASE EVENT DATE: 201504
